FAERS Safety Report 17882635 (Version 2)
Quarter: 2020Q3

REPORT INFORMATION
  Report Type: Spontaneous
  Country: PL (occurrence: PL)
  Receive Date: 20200610
  Receipt Date: 20200803
  Transmission Date: 20201103
  Serious: Yes (Other)
  Sender: FDA-Public Use
  Company Number: PL-ASTRAZENECA-2020SE73456

PATIENT
  Age: 22 Year
  Sex: Male

DRUGS (3)
  1. PROMONTA [Concomitant]
     Active Substance: MONTELUKAST SODIUM
     Route: 048
     Dates: start: 20200603, end: 20200603
  2. FLIXONASE NASULE [Concomitant]
     Active Substance: FLUTICASONE PROPIONATE
     Route: 045
     Dates: start: 20200603, end: 20200603
  3. FASENRA [Suspect]
     Active Substance: BENRALIZUMAB
     Indication: ASTHMA
     Dosage: 30.0MG UNKNOWN
     Route: 058
     Dates: start: 20191218

REACTIONS (1)
  - Eosinophil count increased [Recovered/Resolved]

NARRATIVE: CASE EVENT DATE: 20200603
